FAERS Safety Report 23398358 (Version 2)
Quarter: 2024Q1

REPORT INFORMATION
  Report Type: Spontaneous
  Country: ES (occurrence: ES)
  Receive Date: 20240112
  Receipt Date: 20240125
  Transmission Date: 20240410
  Serious: Yes (Other)
  Sender: FDA-Public Use
  Company Number: ES-ALMIRALL, LLC-2024AQU000004

PATIENT
  Age: 47 Year
  Sex: Female

DRUGS (3)
  1. DAPSONE [Suspect]
     Active Substance: DAPSONE
     Indication: Dermatitis herpetiformis
     Dosage: UNK
     Route: 065
  2. CYCLOSPORINE [Suspect]
     Active Substance: CYCLOSPORINE
     Indication: Dermatitis atopic
     Dosage: 200 MILLIGRAM, QD
     Route: 065
  3. MYCOPHEN MOFETIL ACCORD [Concomitant]
     Indication: Dermatitis atopic
     Dosage: 1.5 GRAM, QD
     Route: 065

REACTIONS (4)
  - Drug reaction with eosinophilia and systemic symptoms [Unknown]
  - Anaemia [Unknown]
  - Abdominal pain [Unknown]
  - Off label use [Unknown]
